FAERS Safety Report 8068983-9 (Version None)
Quarter: 2011Q4

REPORT INFORMATION
  Report Type: 
  Country: None (occurrence: None)
  Receive Date: 20111221
  Receipt Date: 20101117
  Transmission Date: 20120403
  Serious: Yes (Hospitalization)
  Sender: FDA-Public Use
  Company Number: PHHY2010US75484

PATIENT
  Age: 36 Year
  Sex: Male

DRUGS (2)
  1. EXJADE [Suspect]
     Dosage: 2000 MG/DAY, ORAL
     Route: 048
  2. ANTIBIOTICS (NO INGREDIENTS/SUBSTANCES) [Concomitant]

REACTIONS (3)
  - BLOOD POTASSIUM DECREASED [None]
  - DIARRHOEA [None]
  - SICKLE CELL ANAEMIA WITH CRISIS [None]
